FAERS Safety Report 6383553-6 (Version None)
Quarter: 2009Q4

REPORT INFORMATION
  Report Type: 
  Country: None (occurrence: None)
  Receive Date: 20091001
  Receipt Date: 20090921
  Transmission Date: 20100525
  Serious: Yes (Hospitalization)
  Sender: FDA-Public Use
  Company Number: GB-ROCHE-658245

PATIENT
  Age: 35 Year
  Sex: Female

DRUGS (2)
  1. TAMIFLU [Suspect]
     Route: 065
     Dates: start: 20090818, end: 20090822
  2. CLARITHROMYCIN [Concomitant]
     Route: 048
     Dates: start: 20090818, end: 20090822

REACTIONS (6)
  - DERMATITIS BULLOUS [None]
  - LIP SWELLING [None]
  - MUCOSA VESICLE [None]
  - RASH MACULAR [None]
  - SECRETION DISCHARGE [None]
  - SWELLING FACE [None]
